FAERS Safety Report 4867606-7 (Version None)
Quarter: 2005Q4

REPORT INFORMATION
  Report Type: 
  Country: None (occurrence: None)
  Receive Date: 20051222
  Receipt Date: 20051215
  Transmission Date: 20060501
  Serious: Yes (Life-Threatening, Hospitalization)
  Sender: FDA-Public Use
  Company Number: 200513000BWH

PATIENT
  Age: 3 Year
  Sex: Female
  Weight: 15.4 kg

DRUGS (3)
  1. TRASYLOL [Suspect]
     Indication: MITRAL VALVE REPAIR
     Dosage: 1 ML, ONCE, INTRAVENOUS
     Route: 042
     Dates: start: 20051214
  2. ANCEF [Suspect]
     Dosage: INTRAVENOUS
     Route: 042
  3. ENALAPRIL [Concomitant]

REACTIONS (4)
  - BLOOD PRESSURE DECREASED [None]
  - HYPERSENSITIVITY [None]
  - OXYGEN SATURATION DECREASED [None]
  - PETECHIAE [None]
